FAERS Safety Report 21871809 (Version 2)
Quarter: 2023Q1

REPORT INFORMATION
  Report Type: Report from Study
  Country: US (occurrence: US)
  Receive Date: 20230117
  Receipt Date: 20230131
  Transmission Date: 20230418
  Serious: No
  Sender: FDA-Public Use
  Company Number: US-ABBVIE-4268713

PATIENT
  Sex: Male

DRUGS (2)
  1. VENCLEXTA [Suspect]
     Active Substance: VENETOCLAX
     Indication: Acute lymphocytic leukaemia
     Dosage: TWO 10 MG TABLET FOR 7 DAYS, FORM STRENGTH: 10 MILLIGRAM
     Route: 048
  2. BENADRYL [Suspect]
     Active Substance: DIPHENHYDRAMINE HYDROCHLORIDE
     Indication: Product used for unknown indication
     Route: 065

REACTIONS (6)
  - Salivary hypersecretion [Unknown]
  - Anxiety [Unknown]
  - Nausea [Recovering/Resolving]
  - Platelet count decreased [Recovered/Resolved]
  - Somnolence [Recovering/Resolving]
  - COVID-19 [Recovering/Resolving]
